FAERS Safety Report 6020210-X (Version None)
Quarter: 2008Q4

REPORT INFORMATION
  Report Type: 
  Country: None (occurrence: None)
  Receive Date: 20081223
  Receipt Date: 20081223
  Transmission Date: 20090506
  Serious: Yes (Hospitalization)
  Sender: FDA-Public Use
  Company Number: None

PATIENT
  Age: 48 Year
  Sex: Female
  Weight: 81.6475 kg

DRUGS (1)
  1. GEODON [Suspect]
     Indication: BIPOLAR II DISORDER
     Dosage: 60 MG DAILY PO
     Route: 048
     Dates: start: 20070222, end: 20070617

REACTIONS (7)
  - BLINDNESS [None]
  - IMPAIRED DRIVING ABILITY [None]
  - IMPAIRED WORK ABILITY [None]
  - INAPPROPRIATE SCHEDULE OF DRUG ADMINISTRATION [None]
  - MUSCLE SPASMS [None]
  - PSYCHOTIC DISORDER [None]
  - TARDIVE DYSKINESIA [None]
